FAERS Safety Report 12622448 (Version 5)
Quarter: 2019Q3

REPORT INFORMATION
  Report Type: Spontaneous
  Country: US (occurrence: US)
  Receive Date: 20160804
  Receipt Date: 20190702
  Transmission Date: 20191004
  Serious: Yes (Life-Threatening, Hospitalization, Other)
  Sender: FDA-Public Use
  Company Number: PHEH2016US018991

PATIENT
  Sex: Female

DRUGS (5)
  1. GEN-HYDROXYCHLOROQUINE [Concomitant]
     Active Substance: HYDROXYCHLOROQUINE SULFATE
     Indication: PRODUCT USED FOR UNKNOWN INDICATION
     Route: 065
  2. RECLAST [Suspect]
     Active Substance: ZOLEDRONIC ACID
     Indication: BONE DISORDER
     Dosage: 1 DF, Q12MO, 1 TIME INFUSION, LASTS FOR 1 YEAR
     Route: 065
     Dates: start: 201004
  3. METHOTREXATE. [Interacting]
     Active Substance: METHOTREXATE
     Indication: OSTEOARTHRITIS
  4. METHOTREXATE. [Interacting]
     Active Substance: METHOTREXATE
     Indication: RHEUMATOID ARTHRITIS
     Dosage: UNK
     Route: 065
     Dates: start: 2010, end: 2010
  5. PREDNISONE. [Interacting]
     Active Substance: PREDNISONE
     Indication: PRODUCT USED FOR UNKNOWN INDICATION
     Route: 065

REACTIONS (22)
  - Drug ineffective [Not Recovered/Not Resolved]
  - Tongue discolouration [Unknown]
  - Oesophageal infection [Unknown]
  - Arthritis [Unknown]
  - Tongue coated [Unknown]
  - Drug interaction [Unknown]
  - Pharyngeal swelling [Unknown]
  - Feeling abnormal [Unknown]
  - Immune system disorder [Unknown]
  - Hallucination [Unknown]
  - General physical health deterioration [Unknown]
  - Asthenia [Unknown]
  - Dysphagia [Unknown]
  - Pharyngitis [Unknown]
  - Seizure [Unknown]
  - Chills [Unknown]
  - Throat tightness [Unknown]
  - Autoimmune disorder [Unknown]
  - Urinary tract infection [Unknown]
  - Malaise [Unknown]
  - Pain [Unknown]
  - Oesophagitis [Unknown]

NARRATIVE: CASE EVENT DATE: 2010
